FAERS Safety Report 17374349 (Version 1)
Quarter: 2020Q1

REPORT INFORMATION
  Report Type: Spontaneous
  Country: US (occurrence: US)
  Receive Date: 20200121
  Receipt Date: 20200121
  Transmission Date: 20200409
  Serious: Yes (Hospitalization)
  Sender: FDA-Public Use
  Company Number: None

PATIENT
  Age: 73 Year
  Sex: Female
  Weight: 101.6 kg

DRUGS (3)
  1. DEXAMETHASONE. [Suspect]
     Active Substance: DEXAMETHASONE
     Dates: end: 20160216
  2. LENALIDOMIDE (CC-5013) [Suspect]
     Active Substance: LENALIDOMIDE
     Dates: end: 20160218
  3. VELCADE [Suspect]
     Active Substance: BORTEZOMIB
     Dates: end: 20160215

REACTIONS (3)
  - Feeling jittery [None]
  - Dizziness [None]
  - Syncope [None]

NARRATIVE: CASE EVENT DATE: 20160219
